FAERS Safety Report 9341134 (Version 1)
Quarter: 2013Q2

REPORT INFORMATION
  Report Type: Spontaneous
  Country: US (occurrence: US)
  Receive Date: 20130611
  Receipt Date: 20130611
  Transmission Date: 20140414
  Serious: No
  Sender: FDA-Public Use
  Company Number: US-009507513-1306USA002775

PATIENT
  Age: 70 Year
  Sex: Female

DRUGS (1)
  1. MIRALAX [Suspect]
     Indication: CONSTIPATION
     Dosage: 17 G, QPM
     Route: 048
     Dates: start: 20130531

REACTIONS (2)
  - Abdominal pain upper [Recovering/Resolving]
  - Vertigo [Recovered/Resolved]
